FAERS Safety Report 23890523 (Version 5)
Quarter: 2024Q3

REPORT INFORMATION
  Report Type: Spontaneous
  Country: GB (occurrence: GB)
  Receive Date: 20240523
  Receipt Date: 20240715
  Transmission Date: 20241017
  Serious: Yes (Other)
  Sender: PFIZER
  Company Number: GB-MLMSERVICE-20240517-PI059713-00270-2

PATIENT
  Sex: Female
  Weight: 0.806 kg

DRUGS (8)
  1. RITUXIMAB [Suspect]
     Active Substance: RITUXIMAB
     Indication: Anti-glomerular basement membrane disease
     Dosage: 1 G, SINGLE
     Route: 064
  2. CYCLOPHOSPHAMIDE [Concomitant]
     Active Substance: CYCLOPHOSPHAMIDE
     Indication: Anti-glomerular basement membrane disease
     Dosage: ON DAY 3
     Route: 064
  3. CEFUROXIME [Concomitant]
     Active Substance: CEFUROXIME
     Dosage: 1.5 G
     Route: 064
  4. IRON [Concomitant]
     Active Substance: IRON
     Dosage: UNK
     Route: 064
  5. TAZOBACTAM [Concomitant]
     Active Substance: TAZOBACTAM
     Indication: Pneumonia
     Dosage: UNK
     Route: 064
  6. METHYLPREDNISOLONE [Concomitant]
     Active Substance: METHYLPREDNISOLONE
     Indication: Anti-glomerular basement membrane disease
     Dosage: UNK
     Route: 064
  7. PREDNISOLONE [Concomitant]
     Active Substance: PREDNISOLONE
     Indication: Prophylaxis
     Dosage: UNK
     Route: 064
  8. ACYCLOVIR [Concomitant]
     Active Substance: ACYCLOVIR
     Indication: Prophylaxis
     Dosage: UNK
     Route: 064

REACTIONS (3)
  - Maternal exposure during pregnancy [Recovered/Resolved]
  - Congenital cytomegalovirus infection [Recovered/Resolved]
  - Deafness congenital [Recovered/Resolved]
